FAERS Safety Report 25745409 (Version 1)
Quarter: 2025Q3

REPORT INFORMATION
  Report Type: Spontaneous
  Country: US (occurrence: US)
  Receive Date: 20250901
  Receipt Date: 20250901
  Transmission Date: 20251020
  Serious: No
  Sender: pharmaAND
  Company Number: US-Pharmaand-2024000709

PATIENT
  Age: 51 Year
  Sex: Female

DRUGS (1)
  1. PEGASYS [Suspect]
     Active Substance: PEGINTERFERON ALFA-2A
     Indication: Polycythaemia vera
     Dosage: 90 MCG EVERY TWO WEEKS
     Route: 058
     Dates: start: 20230724

REACTIONS (4)
  - Off label use [Recovered/Resolved]
  - Polycythaemia vera [Recovered/Resolved]
  - Underdose [Recovered/Resolved]
  - Syringe issue [Recovered/Resolved]

NARRATIVE: CASE EVENT DATE: 20240803
